FAERS Safety Report 8492505-1 (Version None)
Quarter: 2012Q3

REPORT INFORMATION
  Report Type: 
  Country: None (occurrence: None)
  Receive Date: 20120706
  Receipt Date: 20120703
  Transmission Date: 20120928
  Serious: No
  Sender: FDA-Public Use
  Company Number: US-PFIZER INC-2012130817

PATIENT
  Sex: Female
  Weight: 67 kg

DRUGS (3)
  1. INSULIN [Concomitant]
     Indication: DIABETES MELLITUS
     Dosage: UNK
  2. NICOTROL [Suspect]
     Indication: SMOKING CESSATION THERAPY
     Dosage: 10 MG, 4 TO 5 TIMES A DAY
     Route: 055
  3. NICOTROL [Suspect]
     Dosage: UNK
     Route: 055

REACTIONS (4)
  - PRODUCT QUALITY ISSUE [None]
  - COUGH [None]
  - DRY THROAT [None]
  - THROAT IRRITATION [None]
